FAERS Safety Report 9121224 (Version 1)
Quarter: 2013Q1

REPORT INFORMATION
  Report Type: Report from Study
  Country: CA (occurrence: CA)
  Receive Date: 20130225
  Receipt Date: 20130225
  Transmission Date: 20140127
  Serious: Yes (Other)
  Sender: FDA-Public Use
  Company Number: CA-ROCHE-1193826

PATIENT
  Age: 77 Year
  Sex: 0

DRUGS (5)
  1. XELODA [Suspect]
     Indication: COLORECTAL CANCER
     Route: 065
     Dates: end: 20120627
  2. AVASTIN [Suspect]
     Indication: COLORECTAL CANCER
     Route: 065
     Dates: start: 20121024, end: 20121107
  3. FOLINIC ACID [Suspect]
     Indication: COLORECTAL CANCER
     Route: 065
     Dates: start: 20121024, end: 20121107
  4. FLUOROURACIL [Suspect]
     Indication: COLORECTAL CANCER
     Route: 065
  5. IRINOTECAN [Suspect]
     Indication: COLORECTAL CANCER
     Route: 065

REACTIONS (3)
  - Disease progression [Unknown]
  - Adverse reaction [Unknown]
  - Toxicity to various agents [Unknown]
